FAERS Safety Report 23762771 (Version 1)
Quarter: 2024Q2

REPORT INFORMATION
  Report Type: Spontaneous
  Country: US (occurrence: US)
  Receive Date: 20240419
  Receipt Date: 20240419
  Transmission Date: 20240716
  Serious: No
  Sender: FDA-Public Use
  Company Number: US-009507513-2404USA006397

PATIENT
  Age: 8 Year
  Sex: Female

DRUGS (10)
  1. CUBICIN [Suspect]
     Active Substance: DAPTOMYCIN
     Indication: Staphylococcal infection
     Dosage: 10 MILLIGRAM/KILOGRAM, QD
  2. CUBICIN [Suspect]
     Active Substance: DAPTOMYCIN
     Indication: Endocarditis
     Dosage: 11 MILLIGRAM/KILOGRAM, QD  VIA PERIPHERALLY-INSERTED CENTRAL CATHETER
  3. CUBICIN [Suspect]
     Active Substance: DAPTOMYCIN
     Indication: Osteomyelitis acute
  4. CEFTAROLINE [Concomitant]
     Active Substance: CEFTAROLINE
     Indication: Staphylococcal infection
     Dosage: 40 MILLIGRAM/KILOGRAM, CEFTAROLINE 40 MG/KG DAILY DIVIDED EVERY 8 HOURS
  5. CEFTAROLINE [Concomitant]
     Active Substance: CEFTAROLINE
     Indication: Endocarditis
  6. CEFTAROLINE [Concomitant]
     Active Substance: CEFTAROLINE
     Indication: Osteomyelitis acute
  7. HEPARIN [Concomitant]
     Active Substance: HEPARIN SODIUM
     Indication: Thrombosis
     Dosage: 44 UNITS/HR
  8. ENOXAPARIN [Concomitant]
     Active Substance: ENOXAPARIN
     Indication: Thrombosis
  9. LEVETIRACETAM [Concomitant]
     Active Substance: LEVETIRACETAM
     Dosage: 15 MG/KG TWICE DAILY
  10. MIDAZOLAM [Concomitant]
     Active Substance: MIDAZOLAM
     Dosage: 0.05 MG/KG AS NEEDED

REACTIONS (1)
  - Product use in unapproved indication [Unknown]
